FAERS Safety Report 15942064 (Version 1)
Quarter: 2019Q1

REPORT INFORMATION
  Report Type: Spontaneous
  Country: US (occurrence: US)
  Receive Date: 20190210
  Receipt Date: 20190210
  Transmission Date: 20190417
  Serious: No
  Sender: FDA-Public Use
  Company Number: US-TARO-2018TAR00049

PATIENT
  Age: 64 Year
  Sex: Female
  Weight: 112.02 kg

DRUGS (2)
  1. METFORMIN [Concomitant]
     Active Substance: METFORMIN HYDROCHLORIDE
     Dosage: 500 MG, UNK
  2. FLUOCINONIDE TOPICAL SOLUTION USP 0.05% [Suspect]
     Active Substance: FLUOCINONIDE
     Indication: PRURITUS
     Dosage: UNK, AS NEEDED TO SCALP
     Route: 061
     Dates: start: 201801, end: 201801

REACTIONS (2)
  - Infection parasitic [Recovered/Resolved]
  - Skin burning sensation [Recovered/Resolved]

NARRATIVE: CASE EVENT DATE: 201801
